FAERS Safety Report 6542390-X (Version None)
Quarter: 2010Q1

REPORT INFORMATION
  Report Type: 
  Country: None (occurrence: None)
  Receive Date: 20100119
  Receipt Date: 20100115
  Transmission Date: 20100710
  Serious: Yes (Death, Hospitalization)
  Sender: FDA-Public Use
  Company Number: IT-CELGENEUS-083-20785-10011100

PATIENT
  Sex: Female

DRUGS (1)
  1. THALIDOMIDE CELGENE [Suspect]
     Indication: MULTIPLE MYELOMA
     Route: 048
     Dates: start: 20091230, end: 20100106

REACTIONS (2)
  - HAEMORRHAGE [None]
  - HYPOTENSION [None]
